FAERS Safety Report 25389352 (Version 3)
Quarter: 2025Q3

REPORT INFORMATION
  Report Type: Report from Study
  Country: US (occurrence: US)
  Receive Date: 20250603
  Receipt Date: 20250802
  Transmission Date: 20251021
  Serious: Yes (Other)
  Sender: ALEXION PHARMACEUTICALS
  Company Number: US-AstraZeneca-CH-00880797A

PATIENT
  Age: 42 Year
  Sex: Female
  Weight: 145.69 kg

DRUGS (11)
  1. ALBUTEROL\BUDESONIDE [Suspect]
     Active Substance: ALBUTEROL\BUDESONIDE
     Route: 065
  2. AIRSUPRA [Concomitant]
     Active Substance: ALBUTEROL SULFATE\BUDESONIDE
  3. ATORVASTATIN [Concomitant]
     Active Substance: ATORVASTATIN
     Dosage: 20 MILLIGRAM, QD
     Dates: start: 20250416
  4. FLUOXETINE [Concomitant]
     Active Substance: FLUOXETINE HYDROCHLORIDE
     Dosage: 20 MILLIGRAM, QD
     Dates: start: 20250416
  5. MIRTAZAPINE [Concomitant]
     Active Substance: MIRTAZAPINE
  6. MIRTAZAPINE [Concomitant]
     Active Substance: MIRTAZAPINE
  7. OMEPRAZOLE [Concomitant]
     Active Substance: OMEPRAZOLE
  8. PRAZOSIN [Concomitant]
     Active Substance: PRAZOSIN
     Dosage: 1 MILLIGRAM, TID
     Dates: start: 20250416
  9. RISPERIDONE [Concomitant]
     Active Substance: RISPERIDONE
  10. TYLENOL [Concomitant]
     Active Substance: ACETAMINOPHEN
     Route: 065
  11. MELATONIN [Concomitant]
     Active Substance: MELATONIN
     Dosage: 20 MILLIGRAM, QD
     Route: 065

REACTIONS (17)
  - Injury [Unknown]
  - Accident [Unknown]
  - Back pain [Unknown]
  - Impaired work ability [Unknown]
  - Depression [Unknown]
  - Post-traumatic stress disorder [Unknown]
  - Dyspnoea exertional [Unknown]
  - Skin lesion [Unknown]
  - Hypersensitivity [Not Recovered/Not Resolved]
  - Swelling [Unknown]
  - Sleep disorder [Unknown]
  - Fatigue [Unknown]
  - Obesity [Unknown]
  - Illness [Unknown]
  - Hypokinesia [Unknown]
  - Oedema [Unknown]
  - Gait disturbance [Unknown]

NARRATIVE: CASE EVENT DATE: 20250416
